FAERS Safety Report 7675801-7 (Version None)
Quarter: 2011Q3

REPORT INFORMATION
  Report Type: 
  Country: None (occurrence: None)
  Receive Date: 20110810
  Receipt Date: 20110801
  Transmission Date: 20111222
  Serious: Yes (Other)
  Sender: FDA-Public Use
  Company Number: US-ASTRAZENECA-2010SE46878

PATIENT
  Age: 56 Year
  Sex: Female

DRUGS (8)
  1. KLONOPIN [Concomitant]
  2. CLONAZEPAM [Concomitant]
  3. LAMICTAL [Concomitant]
  4. SEROQUEL [Suspect]
     Dosage: 300MG ONE AND HALF TABLET DAILY
     Route: 048
  5. SEROQUEL [Suspect]
     Route: 048
     Dates: start: 19980101
  6. SEROQUEL [Suspect]
     Route: 048
     Dates: start: 20000101
  7. WELLBUTRIN [Concomitant]
  8. ARIMIDEX [Suspect]
     Route: 048

REACTIONS (7)
  - TENDONITIS [None]
  - BIPOLAR DISORDER [None]
  - INCORRECT DOSE ADMINISTERED [None]
  - BREAST CANCER [None]
  - FALL [None]
  - WRONG TECHNIQUE IN DRUG USAGE PROCESS [None]
  - STRESS [None]
